FAERS Safety Report 9904736 (Version 2)
Quarter: 2014Q4

REPORT INFORMATION
  Report Type: Spontaneous
  Country: US (occurrence: US)
  Receive Date: 20140218
  Receipt Date: 20141204
  Transmission Date: 20150529
  Serious: Yes (Hospitalization)
  Sender: FDA-Public Use
  Company Number: US-BAYER-2014-024815

PATIENT
  Age: 37 Year
  Sex: Female

DRUGS (9)
  1. BIOTIN [Concomitant]
     Active Substance: BIOTIN
  2. IRON [Concomitant]
     Active Substance: IRON
  3. PHENTERMINE [Concomitant]
     Active Substance: PHENTERMINE
     Dosage: 37.5 MG, DAILY
  4. LORATADINE. [Concomitant]
     Active Substance: LORATADINE
     Dosage: 100 MG, PRN
  5. PROTONIX [Concomitant]
     Active Substance: PANTOPRAZOLE SODIUM
     Dosage: 1 DAILY
  6. ECHINACEA [Concomitant]
     Active Substance: ECHINACEA, UNSPECIFIED
  7. NASONEX [Concomitant]
     Active Substance: MOMETASONE FUROATE
  8. MIRENA [Suspect]
     Active Substance: LEVONORGESTREL
     Indication: MENORRHAGIA
     Dosage: 20 MCG/24HR, CONT
     Route: 015
     Dates: start: 20111129, end: 20120430
  9. ATENOLOL. [Concomitant]
     Active Substance: ATENOLOL
     Dosage: 25 MG, DAILY

REACTIONS (6)
  - Injury [None]
  - Uterine perforation [None]
  - Pain [None]
  - Scar [None]
  - Procedural pain [None]
  - Medical device discomfort [None]

NARRATIVE: CASE EVENT DATE: 20120430
